FAERS Safety Report 16170445 (Version 1)
Quarter: 2019Q2

REPORT INFORMATION
  Report Type: Spontaneous
  Country: US (occurrence: US)
  Receive Date: 20190408
  Receipt Date: 20190408
  Transmission Date: 20190711
  Serious: Yes (Hospitalization, Other)
  Sender: FDA-Public Use
  Company Number: US-MYLANLABS-2019M1032439

PATIENT
  Age: 37 Year
  Sex: Male

DRUGS (1)
  1. CISPLATIN. [Suspect]
     Active Substance: CISPLATIN
     Indication: TESTICULAR GERM CELL TUMOUR
     Route: 065

REACTIONS (4)
  - Thrombocytopenia [Unknown]
  - Oedema peripheral [Unknown]
  - Ventricular hypokinesia [Recovered/Resolved]
  - Cardiac failure [Recovered/Resolved]
